FAERS Safety Report 5140400-8 (Version None)
Quarter: 2006Q4

REPORT INFORMATION
  Report Type: 
  Country: None (occurrence: None)
  Receive Date: 20061031
  Receipt Date: 20061025
  Transmission Date: 20070319
  Serious: Yes (Life-Threatening, Hospitalization)
  Sender: FDA-Public Use
  Company Number: FR-GILEAD-2006-0010537

PATIENT
  Sex: Male
  Weight: 55 kg

DRUGS (7)
  1. TRUVADA [Suspect]
     Route: 048
     Dates: start: 20060615, end: 20060728
  2. VIRAMUNE [Suspect]
     Route: 048
     Dates: start: 20060629, end: 20060728
  3. DARUNAVIR [Suspect]
     Route: 048
     Dates: start: 20060615, end: 20060728
  4. SUSTIVA [Concomitant]
  5. SUBUTEX [Concomitant]
     Dates: start: 19960101
  6. DEPAKENE [Concomitant]
     Dates: start: 20000101
  7. LAMICTAL [Concomitant]
     Dates: start: 20020101

REACTIONS (3)
  - BACTERAEMIA [None]
  - ONYCHOMADESIS [None]
  - STEVENS-JOHNSON SYNDROME [None]
